FAERS Safety Report 7264202-1 (Version None)
Quarter: 2011Q1

REPORT INFORMATION
  Report Type: 
  Country: None (occurrence: None)
  Receive Date: 20110131
  Receipt Date: 20110118
  Transmission Date: 20110831
  Serious: No
  Sender: FDA-Public Use
  Company Number: US-BIOGENIDEC-2010BI033202

PATIENT
  Sex: Female

DRUGS (3)
  1. TYSABRI [Suspect]
     Route: 042
     Dates: start: 20090115
  2. TYSABRI [Suspect]
     Indication: MULTIPLE SCLEROSIS
     Route: 042
     Dates: start: 20070514, end: 20070731
  3. AVONEX [Concomitant]
     Route: 030
     Dates: start: 20080617

REACTIONS (4)
  - PAIN [None]
  - BONE DENSITY DECREASED [None]
  - PSORIASIS [None]
  - FATIGUE [None]
